FAERS Safety Report 7009400-7 (Version None)
Quarter: 2010Q3

REPORT INFORMATION
  Report Type: 
  Country: None (occurrence: None)
  Receive Date: 20100923
  Receipt Date: 20100909
  Transmission Date: 20110219
  Serious: Yes (Other)
  Sender: FDA-Public Use
  Company Number: JP-PAR PHARMACEUTICAL, INC-2010SCPR002088

PATIENT

DRUGS (2)
  1. CABERGOLINE [Suspect]
     Indication: ADENOMA BENIGN
     Dosage: 0.5 MG WEEKLY X2
     Route: 065
  2. CABERGOLINE [Suspect]
     Dosage: 0.5 MG  2X WEEKLY
     Route: 065

REACTIONS (1)
  - CEREBROSPINAL FLUID RHINORRHOEA [None]
